FAERS Safety Report 9977881 (Version 2)
Quarter: 2014Q1

REPORT INFORMATION
  Report Type: Report from Study
  Country: US (occurrence: US)
  Receive Date: 20140306
  Receipt Date: 20140306
  Transmission Date: 20141002
  Serious: No
  Sender: FDA-Public Use
  Company Number: US-ABBVIE-11P-163-0860272-00

PATIENT
  Age: 62 Year
  Sex: Male
  Weight: 72.64 kg

DRUGS (8)
  1. HUMIRA [Suspect]
     Indication: CROHN^S DISEASE
     Dates: start: 20110524, end: 201201
  2. HUMIRA [Suspect]
     Dates: start: 201201
  3. APRISO [Concomitant]
     Indication: CROHN^S DISEASE
  4. XIFAXAN [Concomitant]
     Indication: INFECTION
     Dates: end: 201212
  5. PROBIOTICS [Concomitant]
     Indication: GASTROINTESTINAL DISORDER
     Dosage: 6-8 TABS/ DAY
  6. PROBIOTICS [Concomitant]
  7. MAGNESIUM [Concomitant]
     Indication: MINERAL SUPPLEMENTATION
  8. IRON [Concomitant]
     Indication: ANAEMIA

REACTIONS (6)
  - Crohn^s disease [Recovered/Resolved]
  - Device malfunction [Recovered/Resolved]
  - Gastrointestinal haemorrhage [Recovered/Resolved]
  - Gastrointestinal pain [Recovered/Resolved]
  - Weight increased [Not Recovered/Not Resolved]
  - Haemorrhage [Not Recovered/Not Resolved]
